FAERS Safety Report 21310991 (Version 1)
Quarter: 2022Q3

REPORT INFORMATION
  Report Type: Spontaneous
  Country: US (occurrence: None)
  Receive Date: 20220909
  Receipt Date: 20220909
  Transmission Date: 20221026
  Serious: No
  Sender: FDA-Public Use
  Company Number: US-ARIS GLOBAL-202112-2316

PATIENT
  Sex: Female

DRUGS (21)
  1. OXERVATE [Suspect]
     Active Substance: CENEGERMIN-BKBJ
     Indication: Neurotrophic keratopathy
     Route: 047
     Dates: start: 20210729, end: 20210923
  2. OXERVATE [Suspect]
     Active Substance: CENEGERMIN-BKBJ
     Route: 047
     Dates: start: 20211217
  3. PRESERVISION AREDS SOFTGEL [Concomitant]
  4. CALCIUM CITRATE-VIT D3 [Concomitant]
  5. RESTASIS [Concomitant]
     Active Substance: CYCLOSPORINE
  6. MAGNESIUM [Concomitant]
     Active Substance: MAGNESIUM
  7. VITAMIN D3-ALOE [Concomitant]
     Dosage: 120 MG-1000
  8. IRON [Concomitant]
     Active Substance: IRON
     Dosage: 159 (45) MG
  9. GENTEAL TEARS [Concomitant]
     Active Substance: DEXTRAN 70\HYPROMELLOSE 2910 (4000 MPA.S)
     Dosage: 0.1%-0.3%
  10. SYSTANE (HYPROMELLOSE 2910 (4000 MPA.S)) [Concomitant]
     Active Substance: HYPROMELLOSE 2910 (4000 MPA.S)
     Dosage: 0.3%-0.4%
  11. VITAMIN C [Concomitant]
     Active Substance: ASCORBIC ACID
  12. AMLODIPINE BESYLATE [Concomitant]
     Active Substance: AMLODIPINE BESYLATE
  13. POLYETHYLENE GLYCOL [Concomitant]
     Active Substance: POLYETHYLENE GLYCOL
  14. STELARA [Concomitant]
     Active Substance: USTEKINUMAB
     Dosage: 45 MG/0.5 ML SYRINGE
  15. IRBESARTAN [Concomitant]
     Active Substance: IRBESARTAN
  16. FLUTICASONE PROPIONATE [Concomitant]
     Active Substance: FLUTICASONE PROPIONATE
  17. CYANOCOBALAMIN [Concomitant]
     Active Substance: CYANOCOBALAMIN
  18. COLLAGEN [Concomitant]
     Active Substance: COLLAGEN
     Dosage: 125-740 MG
  19. DEXCHLORPHENIRAMINE MALEATE [Concomitant]
     Active Substance: DEXCHLORPHENIRAMINE MALEATE
  20. ACETAMINOPHEN\HYDROCODONE [Concomitant]
     Active Substance: ACETAMINOPHEN\HYDROCODONE
  21. RABEPRAZOLE SODIUM [Concomitant]
     Active Substance: RABEPRAZOLE SODIUM

REACTIONS (3)
  - Eye pain [Unknown]
  - Photophobia [Unknown]
  - Wrong technique in product usage process [Unknown]
